FAERS Safety Report 6214874-5 (Version None)
Quarter: 2009Q2

REPORT INFORMATION
  Report Type: 
  Country: None (occurrence: None)
  Receive Date: 20090604
  Receipt Date: 20090523
  Transmission Date: 20091009
  Serious: Yes (Hospitalization, Other)
  Sender: FDA-Public Use
  Company Number: US-PFIZER INC-2009172277

PATIENT
  Sex: Female
  Weight: 72.2 kg

DRUGS (10)
  1. SUNITINIB MALATE [Suspect]
     Indication: BREAST CANCER
     Dosage: 37.5 MG, 1X/DAY
     Route: 048
     Dates: start: 20081106
  2. PACLITAXEL [Suspect]
     Indication: BREAST CANCER
     Dosage: 165 MG, WEEKLY 3 OF 4 WEEKS
     Route: 042
     Dates: start: 20081106
  3. DULCOLAX [Concomitant]
     Indication: CONSTIPATION
     Dosage: 10 MG, AS NEEDED
     Route: 054
     Dates: start: 20090216
  4. DECADRON [Concomitant]
     Dosage: 20 MG, 1X/DAY
     Route: 042
     Dates: start: 20090129
  5. PROTONIX [Concomitant]
     Indication: GASTROOESOPHAGEAL REFLUX DISEASE
     Dosage: 40 MG, 1X/DAY
     Route: 048
     Dates: start: 20081204, end: 20090129
  6. LORAZEPAM [Concomitant]
     Indication: ANXIETY
     Dosage: 1 MG, 2 X WEEK
     Route: 048
     Dates: start: 20081204
  7. ZOFRAN [Concomitant]
     Dosage: 8 MG, 2-3DAYS A WEEK
     Route: 048
     Dates: start: 20081204
  8. VICODIN [Concomitant]
     Indication: PAIN
     Dosage: UNK
     Route: 048
     Dates: start: 20081028
  9. CLINDAMYCIN [Concomitant]
     Indication: RASH
     Dosage: UNK
     Route: 061
     Dates: start: 20090129
  10. NEXIUM [Concomitant]
     Indication: DYSPEPSIA
     Dosage: 40 MG, AS NEEDED
     Route: 048

REACTIONS (1)
  - SYNCOPE [None]
